FAERS Safety Report 4282638-8 (Version None)
Quarter: 2004Q1

REPORT INFORMATION
  Report Type: 
  Country: None (occurrence: None)
  Receive Date: 20040130
  Receipt Date: 20030107
  Transmission Date: 20041129
  Serious: No
  Sender: FDA-Public Use
  Company Number: US-BRISTOL-MYERS SQUIBB COMPANY-12153110

PATIENT
  Sex: Male

DRUGS (2)
  1. SERZONE [Suspect]
     Indication: PANIC ATTACK
     Route: 048
     Dates: start: 20010701
  2. SERZONE [Suspect]
     Indication: ANXIETY
     Route: 048
     Dates: start: 20010701

REACTIONS (3)
  - ALANINE AMINOTRANSFERASE ABNORMAL [None]
  - BLOOD BILIRUBIN INCREASED [None]
  - BLOOD GLUCOSE INCREASED [None]
